FAERS Safety Report 7120073-5 (Version None)
Quarter: 2010Q4

REPORT INFORMATION
  Report Type: 
  Country: None (occurrence: None)
  Receive Date: 20101123
  Receipt Date: 20101116
  Transmission Date: 20110411
  Serious: Yes (Other)
  Sender: FDA-Public Use
  Company Number: DE-PFIZER INC-2010149018

PATIENT
  Age: 71 Year
  Sex: Male

DRUGS (1)
  1. DETRUSITOL [Suspect]
     Indication: MICTURITION URGENCY
     Dosage: 2 MG, UNK
     Dates: start: 20101106

REACTIONS (4)
  - DYSPNOEA [None]
  - HEART RATE INCREASED [None]
  - MUSCULOSKELETAL DISCOMFORT [None]
  - SENSATION OF HEAVINESS [None]
